FAERS Safety Report 21057306 (Version 2)
Quarter: 2022Q3

REPORT INFORMATION
  Report Type: Report from Study
  Country: DE (occurrence: DE)
  Receive Date: 20220708
  Receipt Date: 20220803
  Transmission Date: 20221027
  Serious: Yes (Hospitalization)
  Sender: FDA-Public Use
  Company Number: DE-PFIZER INC-2019439253

PATIENT
  Age: 16 Year
  Sex: Female
  Weight: 66.7 kg

DRUGS (4)
  1. ABROCITINIB [Suspect]
     Active Substance: ABROCITINIB
     Indication: Dermatitis atopic
     Dosage: 100 MG, 1X/DAY
     Route: 048
     Dates: start: 20190103, end: 20191015
  2. FEXOFENADINE [Concomitant]
     Active Substance: FEXOFENADINE HYDROCHLORIDE
     Indication: Dermatitis atopic
     Dosage: 120 MG, 1X/DAY
     Route: 048
     Dates: start: 20181004
  3. ETHINYL ESTRADIOL\LEVONORGESTREL [Concomitant]
     Active Substance: ETHINYL ESTRADIOL\LEVONORGESTREL
     Indication: Contraception
     Dosage: 1 TBL, 1X/DAY, SWINGO 30
     Route: 048
     Dates: start: 20180622
  4. BALDRIPARAN [CRATAEGUS LAEVIGATA EXTRACT;HUMULUS LUPULUS EXTRACT;VALER [Concomitant]
     Indication: Major depression
     Dosage: 1 TBL, AS NEEDED
     Route: 048
     Dates: start: 20190402

REACTIONS (1)
  - Eczema herpeticum [Recovered/Resolved]

NARRATIVE: CASE EVENT DATE: 20191005
